FAERS Safety Report 8909528 (Version 2)
Quarter: 2013Q1

REPORT INFORMATION
  Report Type: Spontaneous
  Country: US (occurrence: US)
  Receive Date: 20121115
  Receipt Date: 20130114
  Transmission Date: 20140127
  Serious: No
  Sender: FDA-Public Use
  Company Number: US-B.I. PHARMACEUTICALS,INC./RIDGEFIELD-2012-BP-27507BP

PATIENT
  Age: 55 None
  Sex: Female
  Weight: 61 kg

DRUGS (3)
  1. SPIRIVA [Suspect]
     Indication: CHRONIC OBSTRUCTIVE PULMONARY DISEASE
     Dosage: 18 MCG
     Route: 055
     Dates: start: 2011
  2. FLOVENT [Concomitant]
     Indication: ASTHMA
     Dosage: 220 MCG
     Route: 055
     Dates: start: 2002
  3. ALBUTEROL [Concomitant]
     Indication: ASTHMA
     Route: 055
     Dates: start: 2002

REACTIONS (6)
  - Musculoskeletal chest pain [Not Recovered/Not Resolved]
  - Nasal congestion [Not Recovered/Not Resolved]
  - Discomfort [Not Recovered/Not Resolved]
  - Chills [Not Recovered/Not Resolved]
  - Feeling abnormal [Not Recovered/Not Resolved]
  - Back pain [Not Recovered/Not Resolved]
